FAERS Safety Report 20127000 (Version 1)
Quarter: 2021Q4

REPORT INFORMATION
  Report Type: Spontaneous
  Country: AU (occurrence: AU)
  Receive Date: 20211129
  Receipt Date: 20211129
  Transmission Date: 20220303
  Serious: Yes (Hospitalization, Disabling, Other)
  Sender: FDA-Public Use
  Company Number: AU-ABBVIE-21K-008-4172806-00

PATIENT
  Age: 87 Year
  Sex: Male

DRUGS (14)
  1. VALPROATE SODIUM [Suspect]
     Active Substance: VALPROATE SODIUM
     Indication: Product used for unknown indication
     Route: 065
     Dates: start: 201612
  2. RISPERIDONE [Suspect]
     Active Substance: RISPERIDONE
     Indication: Dementia with Lewy bodies
     Route: 065
     Dates: start: 2017, end: 2017
  3. RISPERIDONE [Suspect]
     Active Substance: RISPERIDONE
     Dosage: DAILY DOSE AS NECESSARY UP TO TWICE DAILY
     Route: 065
     Dates: start: 2017, end: 2017
  4. OXYCODONE [Suspect]
     Active Substance: OXYCODONE
     Indication: Product used for unknown indication
     Dosage: WHEN NECESSARY UP TO 4 TIMES PER DAY
     Route: 065
     Dates: start: 2017, end: 2017
  5. ATORVASTATIN [Suspect]
     Active Substance: ATORVASTATIN
     Indication: Product used for unknown indication
     Route: 065
     Dates: end: 2017
  6. PERINDOPRIL [Suspect]
     Active Substance: PERINDOPRIL
     Indication: Product used for unknown indication
     Route: 065
     Dates: end: 2017
  7. MIRTAZAPINE [Suspect]
     Active Substance: MIRTAZAPINE
     Indication: Product used for unknown indication
     Route: 065
     Dates: end: 2017
  8. TIOTROPIUM BROMIDE [Suspect]
     Active Substance: TIOTROPIUM BROMIDE
     Indication: Product used for unknown indication
     Route: 065
     Dates: end: 2017
  9. BUPRENORPHINE [Suspect]
     Active Substance: BUPRENORPHINE
     Indication: Product used for unknown indication
     Route: 065
     Dates: start: 2017, end: 2017
  10. ASPIRIN [Concomitant]
     Active Substance: ASPIRIN
     Indication: Product used for unknown indication
     Dates: end: 2017
  11. THIAMINE [Concomitant]
     Active Substance: THIAMINE
     Indication: Product used for unknown indication
     Dates: end: 2017
  12. ALLOPURINOL [Concomitant]
     Active Substance: ALLOPURINOL
     Indication: Product used for unknown indication
     Dates: end: 2017
  13. ALBUTEROL [Concomitant]
     Active Substance: ALBUTEROL
     Indication: Product used for unknown indication
     Dates: start: 2017
  14. ACETAMINOPHEN [Concomitant]
     Active Substance: ACETAMINOPHEN
     Indication: Product used for unknown indication
     Dates: start: 2017, end: 2017

REACTIONS (19)
  - Mastication disorder [Recovering/Resolving]
  - Muscular weakness [Recovering/Resolving]
  - Malnutrition [Recovering/Resolving]
  - Joint injury [Recovering/Resolving]
  - Cachexia [Recovering/Resolving]
  - Dystonia [Recovered/Resolved]
  - Rib fracture [Recovering/Resolving]
  - Decreased gait velocity [Recovered/Resolved]
  - Muscle rigidity [Recovering/Resolving]
  - Sarcopenia [Recovered/Resolved]
  - Aptyalism [Recovering/Resolving]
  - Dysphagia [Recovering/Resolving]
  - Delirium [Recovered/Resolved]
  - Extrapyramidal disorder [Recovering/Resolving]
  - Fall [Recovering/Resolving]
  - Sedation [Recovering/Resolving]
  - Cognitive disorder [Recovering/Resolving]
  - Tardive dyskinesia [Recovering/Resolving]
  - Asthenia [Recovering/Resolving]

NARRATIVE: CASE EVENT DATE: 20160101
